FAERS Safety Report 9250948 (Version 2)
Quarter: 2013Q2

REPORT INFORMATION
  Report Type: Report from Study
  Country: US (occurrence: US)
  Receive Date: 20130424
  Receipt Date: 20130429
  Transmission Date: 20140414
  Serious: Yes (Hospitalization, Other)
  Sender: FDA-Public Use
  Company Number: PHEH2013US009139

PATIENT
  Age: 37 Year
  Sex: Female

DRUGS (6)
  1. GILENYA [Suspect]
     Indication: MULTIPLE SCLEROSIS
     Dosage: 0.5 MG, QD
     Route: 048
     Dates: start: 20120530
  2. TOPAMAX [Concomitant]
     Dosage: UNK
     Route: 048
  3. IMITREX [Concomitant]
     Dosage: UNK
     Route: 048
  4. TIZANIDINE [Concomitant]
     Route: 048
  5. VICODIN [Concomitant]
     Route: 048
  6. GABAPENTIN [Concomitant]
     Route: 048

REACTIONS (1)
  - Loss of consciousness [Not Recovered/Not Resolved]
